FAERS Safety Report 12924751 (Version 1)
Quarter: 2016Q4

REPORT INFORMATION
  Report Type: Spontaneous
  Country: US (occurrence: US)
  Receive Date: 20161108
  Receipt Date: 20161108
  Transmission Date: 20170207
  Serious: Yes (Disabling)
  Sender: FDA-Public Use
  Company Number: None

PATIENT
  Age: 53 Year
  Sex: Male
  Weight: 87.75 kg

DRUGS (3)
  1. NEXIUM [Suspect]
     Active Substance: ESOMEPRAZOLE MAGNESIUM
     Indication: GASTROOESOPHAGEAL REFLUX DISEASE
     Dosage: ?          QUANTITY:90 CAPSULE(S);?
     Route: 048
  2. MULTI-VITAMINS [Concomitant]
  3. SLEEP ORAL DEVICE [Concomitant]

REACTIONS (7)
  - Sleep disorder [None]
  - Chest pain [None]
  - Nervousness [None]
  - Confusional state [None]
  - Anxiety [None]
  - Agitation [None]
  - Depression [None]

NARRATIVE: CASE EVENT DATE: 20160411
